FAERS Safety Report 14759066 (Version 1)
Quarter: 2018Q2

REPORT INFORMATION
  Report Type: Spontaneous
  Country: DE (occurrence: DE)
  Receive Date: 20180413
  Receipt Date: 20180413
  Transmission Date: 20180711
  Serious: Yes (Other)
  Sender: FDA-Public Use
  Company Number: PHHY2018DE064962

PATIENT
  Age: 5 Week

DRUGS (1)
  1. ACICLOVIR 1A PHARMA [Suspect]
     Active Substance: ACYCLOVIR
     Indication: FOETAL EXPOSURE DURING PREGNANCY
     Dosage: MATERNAL DOSE: 800 MG
     Route: 064

REACTIONS (1)
  - Intestinal haemorrhage [Unknown]
